FAERS Safety Report 7699484 (Version 3)
Quarter: 2013Q3

REPORT INFORMATION
  Report Type: Spontaneous
  Country: JP (occurrence: JP)
  Receive Date: 20101208
  Receipt Date: 20130701
  Transmission Date: 20140515
  Serious: Yes (Other)
  Sender: FDA-Public Use
  Company Number: JP-ELI_LILLY_AND_COMPANY-JP201011007015

PATIENT
  Age: 71 Year
  Sex: Female
  Weight: 37 kg

DRUGS (10)
  1. ALIMTA [Suspect]
     Indication: LUNG ADENOCARCINOMA RECURRENT
     Dosage: 600 MG, UNK
     Route: 042
     Dates: start: 20100805, end: 20100929
  2. MAGLAX                                  /JPN/ [Concomitant]
     Indication: CONSTIPATION
     Dosage: 1500 MG, QD
     Route: 048
     Dates: start: 20080805
  3. BAKTAR [Concomitant]
     Indication: PROPHYLAXIS
     Dosage: UNK
     Route: 048
     Dates: start: 20090303
  4. PREDONINE [Concomitant]
     Indication: RADIATION PNEUMONITIS
     Dosage: 5 MG, QD
     Route: 048
     Dates: start: 20090220
  5. MEDICON [Concomitant]
     Indication: COUGH
     Dosage: 15 MG, QD
     Route: 048
     Dates: start: 20091124
  6. TAKEPRON [Concomitant]
     Indication: PROPHYLAXIS
     Dosage: 15 MG, QD
     Route: 048
     Dates: start: 20080811
  7. LENDORMIN [Concomitant]
     Indication: INSOMNIA
     Dosage: 0.25 MG, QD
     Route: 048
     Dates: start: 20080612
  8. LIPITOR [Concomitant]
     Indication: HYPERLIPIDAEMIA
     Dosage: 5 MG, QD
     Route: 048
     Dates: start: 20100203
  9. PANVITAN [Concomitant]
     Indication: PROPHYLAXIS
     Dosage: 1 G, QD
     Route: 048
     Dates: start: 20100728
  10. BONALON [Concomitant]
     Indication: PROPHYLAXIS
     Dosage: 35 MG, QD
     Route: 048
     Dates: start: 20090309

REACTIONS (2)
  - C-reactive protein increased [Recovering/Resolving]
  - Anaemia [Recovered/Resolved]
